FAERS Safety Report 6050642-5 (Version None)
Quarter: 2009Q1

REPORT INFORMATION
  Report Type: 
  Country: None (occurrence: None)
  Receive Date: 20090126
  Receipt Date: 20090115
  Transmission Date: 20090719
  Serious: Yes (Death, Hospitalization)
  Sender: FDA-Public Use
  Company Number: JP-WYE-H07386908

PATIENT
  Age: 77 Year
  Sex: Male

DRUGS (2)
  1. ANCARON [Suspect]
     Dosage: 400 MG FOR ONE WEEK
     Route: 048
  2. ANCARON [Suspect]
     Dosage: 200 MG
     Route: 048

REACTIONS (2)
  - DEATH [None]
  - INTERSTITIAL LUNG DISEASE [None]
